FAERS Safety Report 6704366-9 (Version None)
Quarter: 2010Q2

REPORT INFORMATION
  Report Type: 
  Country: None (occurrence: None)
  Receive Date: 20100430
  Receipt Date: 20100421
  Transmission Date: 20101027
  Serious: Yes (Hospitalization, Other)
  Sender: FDA-Public Use
  Company Number: US-MERCK-0901USA00891

PATIENT
  Age: 55 Year
  Sex: Female

DRUGS (12)
  1. FOSAMAX [Suspect]
     Indication: OSTEOPOROSIS
     Route: 048
     Dates: start: 20010101, end: 20080501
  2. RISPERDAL [Concomitant]
     Indication: DEPRESSION
     Route: 065
     Dates: start: 19990101
  3. ELAVIL [Concomitant]
     Indication: SLEEP DISORDER
     Route: 065
     Dates: start: 19970101
  4. TRAMADOL HYDROCHLORIDE [Concomitant]
     Indication: PAIN
     Route: 065
     Dates: start: 19990101
  5. HYDROCODONE BITARTRATE [Concomitant]
     Indication: BREAKTHROUGH PAIN
     Route: 065
     Dates: start: 19970101
  6. DURAGESIC-100 [Concomitant]
     Route: 065
     Dates: start: 19970101
  7. DIAZEPAM [Concomitant]
     Indication: MUSCLE SPASMS
     Route: 065
     Dates: start: 19970101
  8. SINGULAIR [Concomitant]
     Indication: HYPERSENSITIVITY
     Route: 048
     Dates: start: 19990101
  9. TEMAZEPAM [Concomitant]
     Indication: SLEEP DISORDER
     Route: 065
     Dates: start: 19970101
  10. CITALOPRAM [Concomitant]
     Indication: DEPRESSION
     Route: 065
     Dates: start: 19990101
  11. ZANTAC [Concomitant]
     Indication: ULCER
     Route: 065
     Dates: start: 19990101
  12. ESTROPIPATE [Concomitant]
     Indication: HORMONE THERAPY
     Route: 065
     Dates: start: 19970101

REACTIONS (39)
  - ABSCESS [None]
  - ANAEMIA OF CHRONIC DISEASE [None]
  - ANXIETY [None]
  - BACK DISORDER [None]
  - BENIGN NEOPLASM [None]
  - CACHEXIA [None]
  - CHOLELITHIASIS [None]
  - CLOSTRIDIAL INFECTION [None]
  - CONVULSION [None]
  - DELIRIUM [None]
  - DERMAL CYST [None]
  - DIARRHOEA [None]
  - DYSTHYMIC DISORDER [None]
  - FISTULA [None]
  - GINGIVAL DISORDER [None]
  - HEAD INJURY [None]
  - HEPATIC ENZYME INCREASED [None]
  - HYPOCALCAEMIA [None]
  - HYPOMAGNESAEMIA [None]
  - HYPONATRAEMIA [None]
  - HYPOPROTEINAEMIA [None]
  - HYPOTENSION [None]
  - HYPOVOLAEMIA [None]
  - LETHARGY [None]
  - MALNUTRITION [None]
  - OSTEOMYELITIS [None]
  - OSTEONECROSIS [None]
  - OSTEORADIONECROSIS [None]
  - OVERDOSE [None]
  - PEPTIC ULCER [None]
  - PLEURAL EFFUSION [None]
  - PNEUMOTHORAX [None]
  - POST PROCEDURAL COMPLICATION [None]
  - POSTMENOPAUSE [None]
  - RASH [None]
  - RIB FRACTURE [None]
  - ROAD TRAFFIC ACCIDENT [None]
  - ROSAI-DORFMAN SYNDROME [None]
  - VOMITING [None]
